FAERS Safety Report 16992996 (Version 1)
Quarter: 2019Q4

REPORT INFORMATION
  Report Type: Spontaneous
  Country: CH (occurrence: CH)
  Receive Date: 20191105
  Receipt Date: 20191105
  Transmission Date: 20200122
  Serious: Yes (Other)
  Sender: FDA-Public Use
  Company Number: CH-PFIZER INC-2019471695

PATIENT
  Age: 47 Year
  Sex: Female

DRUGS (3)
  1. LEFLUNOMID [Suspect]
     Active Substance: LEFLUNOMIDE
     Indication: PSORIATIC ARTHROPATHY
     Dosage: UNK
     Dates: start: 201809
  2. XELJANZ [Suspect]
     Active Substance: TOFACITINIB CITRATE
     Indication: PSORIATIC ARTHROPATHY
     Dosage: UNK, 1X/DAY
     Dates: start: 201901
  3. LEFLUNOMID [Suspect]
     Active Substance: LEFLUNOMIDE
     Dosage: 10 MG, DAILY

REACTIONS (5)
  - Mononeuritis [Unknown]
  - Nasal herpes [Unknown]
  - Tenosynovitis [Unknown]
  - Herpes zoster [Unknown]
  - Arthritis [Unknown]

NARRATIVE: CASE EVENT DATE: 2019
